FAERS Safety Report 23393513 (Version 1)
Quarter: 2024Q1

REPORT INFORMATION
  Report Type: Spontaneous
  Country: US (occurrence: US)
  Receive Date: 20240111
  Receipt Date: 20240111
  Transmission Date: 20240410
  Serious: Yes (Other)
  Sender: FDA-Public Use
  Company Number: US-PFIZER INC-PV202400003349

PATIENT
  Age: 74 Year
  Sex: Female
  Weight: 119 kg

DRUGS (3)
  1. IBRANCE [Suspect]
     Active Substance: PALBOCICLIB
     Indication: HER2 negative breast cancer
     Dosage: TAKE 1 TABLET BY MOUTH EVERY DAY FOR 21 DAYS ON AND 7 DAYS OFF
     Route: 048
  2. LETROZOLE [Concomitant]
     Active Substance: LETROZOLE
     Dosage: UNK
  3. XANAX [Concomitant]
     Active Substance: ALPRAZOLAM
     Indication: Anxiety
     Dosage: 1 TABLET (0.5 MG TOTAL) BY MOUTH 3 (THREE) TIMES PER DAY IF NEEDED
     Route: 048

REACTIONS (6)
  - Renal impairment [Unknown]
  - Blood creatinine increased [Not Recovered/Not Resolved]
  - Diarrhoea [Unknown]
  - Aspartate aminotransferase decreased [Unknown]
  - Haemoglobin decreased [Unknown]
  - Haematocrit decreased [Unknown]

NARRATIVE: CASE EVENT DATE: 20231205
